FAERS Safety Report 8829214 (Version 1)
Quarter: 2012Q4

REPORT INFORMATION
  Report Type: Spontaneous
  Country: US (occurrence: None)
  Receive Date: 20121005
  Receipt Date: 20121005
  Transmission Date: 20130627
  Serious: Yes (Hospitalization, Disabling, Other)
  Sender: FDA-Public Use
  Company Number: None

PATIENT
  Age: 52 Year
  Sex: Female
  Weight: 99.79 kg

DRUGS (1)
  1. ARIMIDEX [Suspect]
     Indication: BREAST CANCER
     Dates: start: 201112, end: 201204

REACTIONS (9)
  - Atrial fibrillation [None]
  - Heart rate increased [None]
  - Rhabdomyolysis [None]
  - Renal failure [None]
  - Ankle fracture [None]
  - Lower limb fracture [None]
  - Arthralgia [None]
  - Neuralgia [None]
  - Surgical failure [None]
